FAERS Safety Report 4883818-0 (Version None)
Quarter: 2006Q1

REPORT INFORMATION
  Report Type: 
  Country: None (occurrence: None)
  Receive Date: 20060117
  Receipt Date: 20060117
  Transmission Date: 20060701
  Serious: Yes (Other)
  Sender: FDA-Public Use
  Company Number: None

PATIENT
  Age: 42 Year
  Sex: Female
  Weight: 49.8957 kg

DRUGS (1)
  1. EFFEXOR XR [Suspect]
     Indication: DEPRESSION
     Dosage: 37.5 MG Q DAY PO
     Route: 048
     Dates: start: 20051027, end: 20060104

REACTIONS (6)
  - ACTIVITIES OF DAILY LIVING IMPAIRED [None]
  - CHILLS [None]
  - EMOTIONAL DISORDER [None]
  - INFLUENZA LIKE ILLNESS [None]
  - MYALGIA [None]
  - VERTIGO [None]
